FAERS Safety Report 6208675 (Version 10)
Quarter: 2015Q4

REPORT INFORMATION
  Report Type: Spontaneous
  Country: US (occurrence: US)
  Receive Date: 20070104
  Receipt Date: 20151113
  Transmission Date: 20160305
  Serious: Yes (Other)
  Sender: FDA-Public Use
  Company Number: US-PFIZER INC-2005011658

PATIENT
  Age: 53 Year
  Sex: Male
  Weight: 135.6 kg

DRUGS (5)
  1. ATENOLOL. [Concomitant]
     Active Substance: ATENOLOL
  2. ZYPREXA [Concomitant]
     Active Substance: OLANZAPINE
  3. VALPROIC ACID /00228502/ [Suspect]
     Active Substance: VALPROATE SODIUM
  4. RISPERIDONE. [Concomitant]
     Active Substance: RISPERIDONE
  5. VIAGRA [Suspect]
     Active Substance: SILDENAFIL CITRATE
     Indication: ERECTILE DYSFUNCTION
     Dosage: 25 MG, 1X/DAY
     Route: 048
     Dates: start: 200701

REACTIONS (7)
  - Sensory loss [Unknown]
  - Erectile dysfunction [Not Recovered/Not Resolved]
  - Erection increased [Not Recovered/Not Resolved]
  - Ejaculation failure [Unknown]
  - Genital injury [Not Recovered/Not Resolved]
  - Drug ineffective [Unknown]
  - Painful erection [Not Recovered/Not Resolved]

NARRATIVE: CASE EVENT DATE: 200501
